FAERS Safety Report 8871008 (Version 1)
Quarter: 2012Q4

REPORT INFORMATION
  Report Type: 
  Country: BR (occurrence: BR)
  Receive Date: 20121029
  Receipt Date: 20121029
  Transmission Date: 20130627
  Serious: Yes (Other)
  Sender: FDA-Public Use
  Company Number: PHHY2012BR096618

PATIENT
  Age: 40 Year
  Sex: Female

DRUGS (1)
  1. CARBAMAZEPINE [Suspect]
     Indication: CONVULSION
     Dosage: 2 tablets in the morning and 2 tablets at night
     Route: 048
     Dates: start: 201111, end: 201204

REACTIONS (5)
  - Muscle atrophy [Recovered/Resolved]
  - Abasia [Recovered/Resolved]
  - Loose tooth [Not Recovered/Not Resolved]
  - Muscle spasms [Recovered/Resolved]
  - Convulsion [Not Recovered/Not Resolved]
